FAERS Safety Report 4553266-1 (Version None)
Quarter: 2005Q1

REPORT INFORMATION
  Report Type: 
  Country: None (occurrence: None)
  Receive Date: 20050112
  Receipt Date: 20041227
  Transmission Date: 20050727
  Serious: Yes (Hospitalization)
  Sender: FDA-Public Use
  Company Number: USA041183191

PATIENT
  Age: 74 Year
  Sex: Female
  Weight: 52 kg

DRUGS (3)
  1. FORTEO [Suspect]
     Indication: OSTEOPOROSIS
     Dosage: 20 UG/1 DAY
     Dates: start: 20041021
  2. EVISTA [Suspect]
     Indication: OSTEOPOROSIS
     Dates: end: 20041001
  3. XANAX (ALPRAZOLAM DUM) [Concomitant]

REACTIONS (12)
  - ASTHENIA [None]
  - CONDITION AGGRAVATED [None]
  - DYSPNOEA [None]
  - FATIGUE [None]
  - HYPOAESTHESIA [None]
  - HYPOXIA [None]
  - MEDICAL DEVICE COMPLICATION [None]
  - MYALGIA [None]
  - NECK PAIN [None]
  - PAIN IN EXTREMITY [None]
  - PHARMACEUTICAL PRODUCT COMPLAINT [None]
  - SPINAL FRACTURE [None]
